FAERS Safety Report 18650898 (Version 1)
Quarter: 2020Q4

REPORT INFORMATION
  Report Type: Spontaneous
  Country: US (occurrence: US)
  Receive Date: 20201223
  Receipt Date: 20201223
  Transmission Date: 20210114
  Serious: No
  Sender: FDA-Public Use
  Company Number: US-DRREDDYS-USA/USA/20/0129945

PATIENT
  Age: 39 Year
  Sex: Male

DRUGS (3)
  1. CLARAVIS [Suspect]
     Active Substance: ISOTRETINOIN
     Indication: PRODUCT USED FOR UNKNOWN INDICATION
     Dosage: RMA ISSUE DATE 5/7/2020 5:37:13 PM
  2. ZENATANE [Suspect]
     Active Substance: ISOTRETINOIN
     Indication: PRODUCT USED FOR UNKNOWN INDICATION
     Dosage: RMA ISSUE DATE:1 6/8/2020 4:24:13 PM, 7/15/2020 10:37:13 AM, 10/16/2020 8:56:22 PM
     Route: 048
  3. CLARAVIS [Suspect]
     Active Substance: ISOTRETINOIN
     Dosage: RMA ISSUE DATE 5/8/2020 1:45:40 PM 8/19/2020 10:38:58 AM AND 10/16/2020 8:56:22 PM

REACTIONS (1)
  - Therapy cessation [Unknown]
